FAERS Safety Report 5839934-X (Version None)
Quarter: 2008Q3

REPORT INFORMATION
  Report Type: 
  Country: None (occurrence: None)
  Receive Date: 20080811
  Receipt Date: 20080807
  Transmission Date: 20090109
  Serious: Yes (Hospitalization, Other)
  Sender: FDA-Public Use
  Company Number: US-JNJFOC-20080500350

PATIENT
  Sex: Male
  Weight: 81.65 kg

DRUGS (4)
  1. FLEXERIL [Suspect]
     Indication: BACK DISORDER
     Route: 048
  2. CYMBALTA [Interacting]
     Indication: BACK DISORDER
     Route: 048
  3. CYMBALTA [Interacting]
     Indication: DEPRESSION
     Route: 048
  4. UNSPECIFIED NARCOTICS [Interacting]
     Indication: BACK DISORDER

REACTIONS (17)
  - ALOPECIA [None]
  - BACK DISORDER [None]
  - DEPRESSION [None]
  - DIABETES MELLITUS [None]
  - DRUG INTERACTION [None]
  - FEELING ABNORMAL [None]
  - GASTRIC DISORDER [None]
  - HEADACHE [None]
  - HEART RATE INCREASED [None]
  - HYPERADRENALISM [None]
  - HYPERHIDROSIS [None]
  - HYPERPARATHYROIDISM [None]
  - HYPERTENSION [None]
  - MEMORY IMPAIRMENT [None]
  - SEDATION [None]
  - SEROTONIN SYNDROME [None]
  - WEIGHT INCREASED [None]
